FAERS Safety Report 18203795 (Version 1)
Quarter: 2020Q3

REPORT INFORMATION
  Report Type: Spontaneous
  Country: US (occurrence: US)
  Receive Date: 20200827
  Receipt Date: 20200827
  Transmission Date: 20201103
  Serious: Yes (Other)
  Sender: FDA-Public Use
  Company Number: US-PURDUE-USA-2020-0163064

PATIENT
  Sex: Male

DRUGS (2)
  1. BUPRENORPHINE TRANSDERMAL PATCH (SIMILAR TO NDA 21?306) [Suspect]
     Active Substance: BUPRENORPHINE
     Indication: PRODUCT USED FOR UNKNOWN INDICATION
     Route: 062
  2. BUTRANS [Suspect]
     Active Substance: BUPRENORPHINE
     Indication: PRODUCT USED FOR UNKNOWN INDICATION
     Route: 062

REACTIONS (16)
  - Developmental delay [Unknown]
  - Blood pressure decreased [Unknown]
  - Blood potassium decreased [Unknown]
  - Learning disability [Unknown]
  - Asthenia [Unknown]
  - Hypersensitivity [Unknown]
  - Crohn^s disease [Unknown]
  - Overdose [Unknown]
  - Abdominal pain [Unknown]
  - Confusional state [Unknown]
  - Back pain [Unknown]
  - Drug dependence [Unknown]
  - Anaemia [Unknown]
  - Urticaria [Unknown]
  - Sinusitis [Unknown]
  - Nasal septum deviation [Unknown]
